FAERS Safety Report 12635704 (Version 1)
Quarter: 2016Q3

REPORT INFORMATION
  Report Type: Report from Study
  Country: BR (occurrence: BR)
  Receive Date: 20160809
  Receipt Date: 20160809
  Transmission Date: 20161109
  Serious: No
  Sender: FDA-Public Use
  Company Number: BR-ROCHE-1035328

PATIENT
  Age: 28 Year
  Sex: Female

DRUGS (1)
  1. OSELTAMIVIR [Suspect]
     Active Substance: OSELTAMIVIR
     Indication: H1N1 INFLUENZA
     Route: 048

REACTIONS (2)
  - Premature delivery [Unknown]
  - Exposure during pregnancy [Unknown]
